APPROVED DRUG PRODUCT: BACITRACIN ZINC-NEOMYCIN SULFATE-POLYMYXIN B SULFATE
Active Ingredient: BACITRACIN ZINC; NEOMYCIN SULFATE; POLYMYXIN B SULFATE
Strength: 400 UNITS/GM;EQ 3.5MG BASE/GM;5,000 UNITS/GM
Dosage Form/Route: OINTMENT;TOPICAL
Application: A062833 | Product #001
Applicant: NASKA PHARMACAL CO INC DIV RUGBY DARBY GROUP COSMETICS
Approved: Nov 9, 1987 | RLD: No | RS: No | Type: DISCN